FAERS Safety Report 19129721 (Version 2)
Quarter: 2021Q2

REPORT INFORMATION
  Report Type: Spontaneous
  Country: US (occurrence: US)
  Receive Date: 20210413
  Receipt Date: 20210428
  Transmission Date: 20210717
  Serious: No
  Sender: FDA-Public Use
  Company Number: US-BIOGEN-2019BI00775115

PATIENT
  Age: 45 Year
  Sex: Male

DRUGS (2)
  1. TECFIDERA [Suspect]
     Active Substance: DIMETHYL FUMARATE
     Indication: MULTIPLE SCLEROSIS
     Route: 048
     Dates: start: 20190624, end: 20190813
  2. PROPRANOLOL [Concomitant]
     Active Substance: PROPRANOLOL HYDROCHLORIDE
     Route: 065

REACTIONS (19)
  - Hyperhidrosis [Recovered/Resolved]
  - Chills [Unknown]
  - Periarthritis [Unknown]
  - Pain [Recovered/Resolved]
  - Feeling of body temperature change [Recovered/Resolved]
  - Hot flush [Recovered/Resolved]
  - Cough [Not Recovered/Not Resolved]
  - Gastric disorder [Unknown]
  - Malaise [Unknown]
  - Hypersomnia [Recovered/Resolved]
  - Fatigue [Not Recovered/Not Resolved]
  - Drug intolerance [Unknown]
  - Mobility decreased [Unknown]
  - Speech disorder [Unknown]
  - Asthenia [Recovered/Resolved]
  - Faeces discoloured [Unknown]
  - Headache [Unknown]
  - Eyelid function disorder [Recovered/Resolved]
  - Diarrhoea [Recovered/Resolved]

NARRATIVE: CASE EVENT DATE: 2019
